FAERS Safety Report 7773305-4 (Version None)
Quarter: 2011Q3

REPORT INFORMATION
  Report Type: 
  Country: None (occurrence: None)
  Receive Date: 20110922
  Receipt Date: 20110915
  Transmission Date: 20111222
  Serious: Yes (Death)
  Sender: FDA-Public Use
  Company Number: FR-ROXANE LABORATORIES, INC.-2011-RO-01311RO

PATIENT
  Age: 31 Year
  Sex: Male

DRUGS (6)
  1. PROPOXYPHENE HCL AND ACETAMINOPHEN [Suspect]
  2. HYDROXYZINE [Suspect]
  3. METHADONE HCL [Suspect]
     Indication: DRUG WITHDRAWAL MAINTENANCE THERAPY
     Dosage: 80 MG
  4. CLONAZEPAM [Suspect]
  5. COTRIM [Suspect]
  6. CYAMEMAZINE [Suspect]

REACTIONS (1)
  - SUDDEN DEATH [None]
